FAERS Safety Report 6196967-4 (Version None)
Quarter: 2009Q2

REPORT INFORMATION
  Report Type: 
  Country: None (occurrence: None)
  Receive Date: 20090520
  Receipt Date: 20090513
  Transmission Date: 20091009
  Serious: Yes (Other)
  Sender: FDA-Public Use
  Company Number: PHHY2008JP30206

PATIENT
  Sex: Female

DRUGS (3)
  1. ZOMETA [Suspect]
     Indication: BONE LESION
     Dosage: UNK
     Route: 042
     Dates: start: 20060802, end: 20071228
  2. ZOMETA [Suspect]
     Indication: METASTASES TO BONE
  3. AREDIA [Concomitant]
     Indication: METASTASES TO BONE
     Dosage: UNK
     Route: 042
     Dates: start: 20030409, end: 20060601

REACTIONS (5)
  - OSTEITIS [None]
  - OSTEOMYELITIS [None]
  - PAIN IN JAW [None]
  - SEQUESTRECTOMY [None]
  - TOOTH EXTRACTION [None]
